FAERS Safety Report 5995293-3 (Version None)
Quarter: 2008Q4

REPORT INFORMATION
  Report Type: 
  Country: None (occurrence: None)
  Receive Date: 20081212
  Receipt Date: 20081007
  Transmission Date: 20090506
  Serious: No
  Sender: FDA-Public Use
  Company Number: US-ABBOTT-08P-163-0478334-00

PATIENT
  Sex: Female

DRUGS (1)
  1. HUMIRA [Suspect]
     Indication: COLITIS ULCERATIVE
     Dates: start: 20080825

REACTIONS (4)
  - IRON DEFICIENCY [None]
  - THROMBOCYTHAEMIA [None]
  - TRANSFERRIN INCREASED [None]
  - WEIGHT DECREASED [None]
